FAERS Safety Report 21416848 (Version 1)
Quarter: 2022Q4

REPORT INFORMATION
  Report Type: Spontaneous
  Country: US (occurrence: US)
  Receive Date: 20221006
  Receipt Date: 20221006
  Transmission Date: 20230112
  Serious: No
  Sender: FDA-Public Use
  Company Number: US-ALLERGAN-2230630US

PATIENT
  Age: 42 Year
  Sex: Female

DRUGS (10)
  1. VRAYLAR [Suspect]
     Active Substance: CARIPRAZINE
     Indication: Product used for unknown indication
     Dosage: UNKNOWN
     Route: 048
  2. VRAYLAR [Suspect]
     Active Substance: CARIPRAZINE
     Dosage: 6 MG
     Route: 048
  3. MAXALT [Concomitant]
     Active Substance: RIZATRIPTAN BENZOATE
     Dosage: 10 MG
  4. BUSPIRONE [Concomitant]
     Active Substance: BUSPIRONE HYDROCHLORIDE
     Dosage: 15 MG
  5. VALSARTAN AND HYDROCHLOROTHIAZIDE [Concomitant]
     Active Substance: HYDROCHLOROTHIAZIDE\VALSARTAN
     Dosage: 80/12.5 MILLIGRAM
  6. HUMIRA [Concomitant]
     Active Substance: ADALIMUMAB
     Dosage: UNK
  7. DOXEPIN [Concomitant]
     Active Substance: DOXEPIN
     Dosage: 75 MG
  8. CONCERTA [Concomitant]
     Active Substance: METHYLPHENIDATE HYDROCHLORIDE
     Dosage: 18 MG
  9. LYRICA [Concomitant]
     Active Substance: PREGABALIN
     Dosage: 50 MG
  10. DIAZEPIN [Concomitant]
     Dosage: 4 MG

REACTIONS (1)
  - Tardive dyskinesia [Unknown]

NARRATIVE: CASE EVENT DATE: 20220209
